FAERS Safety Report 17119386 (Version 6)
Quarter: 2021Q1

REPORT INFORMATION
  Report Type: Report from Study
  Country: PR (occurrence: PR)
  Receive Date: 20191206
  Receipt Date: 20210202
  Transmission Date: 20210419
  Serious: Yes (Other)
  Sender: FDA-Public Use
  Company Number: PR-PFIZER INC-2019453315

PATIENT
  Age: 45 Year
  Sex: Female

DRUGS (6)
  1. ENBREL [Suspect]
     Active Substance: ETANERCEPT
     Dosage: 50 MILLIGRAM, QWK
     Route: 065
     Dates: start: 201912
  2. ORPHENADRINE [Concomitant]
     Active Substance: ORPHENADRINE
     Dosage: UNK
     Dates: start: 2019
  3. METHOTREXATE SODIUM. [Suspect]
     Active Substance: METHOTREXATE SODIUM
     Dosage: UNK
     Route: 065
  4. ENBREL [Suspect]
     Active Substance: ETANERCEPT
     Indication: RHEUMATOID ARTHRITIS
     Dosage: 50 MILLIGRAM, QWK
     Route: 065
     Dates: start: 201907
  5. NABUMETONE. [Concomitant]
     Active Substance: NABUMETONE
     Dosage: UNK
     Dates: start: 2019
  6. ENBREL [Suspect]
     Active Substance: ETANERCEPT
     Dosage: 50 MILLIGRAM, QWK
     Route: 065
     Dates: end: 201912

REACTIONS (22)
  - Pain [Unknown]
  - Hepatomegaly [Unknown]
  - Open angle glaucoma [Unknown]
  - Sinusitis [Unknown]
  - Blood glucose decreased [Recovered/Resolved]
  - Fall [Unknown]
  - Hepatic enzyme increased [Unknown]
  - Gallbladder hypofunction [Not Recovered/Not Resolved]
  - Gastritis [Unknown]
  - Asthma [Unknown]
  - Hepatitis [Unknown]
  - Autoimmune thyroiditis [Unknown]
  - Nasopharyngitis [Not Recovered/Not Resolved]
  - Diarrhoea [Unknown]
  - Skin wrinkling [Not Recovered/Not Resolved]
  - Pleural fibrosis [Unknown]
  - Productive cough [Not Recovered/Not Resolved]
  - Rhinitis [Unknown]
  - Protein total increased [Unknown]
  - Nasal congestion [Unknown]
  - Cheilitis [Unknown]
  - Dry eye [Unknown]

NARRATIVE: CASE EVENT DATE: 2019
